FAERS Safety Report 5059498-0 (Version None)
Quarter: 2006Q3

REPORT INFORMATION
  Report Type: 
  Country: None (occurrence: None)
  Receive Date: 20060724
  Receipt Date: 20060601
  Transmission Date: 20061208
  Serious: Yes (Death, Life-Threatening, Hospitalization)
  Sender: FDA-Public Use
  Company Number: PHRM2006FR01694

PATIENT
  Age: 92 Year
  Sex: Male
  Weight: 80.5 kg

DRUGS (7)
  1. ASPIRIN [Concomitant]
     Dosage: 160 MG/DAY
  2. HEPT-A-MYL [Concomitant]
     Dosage: 2 DF, TID
     Route: 048
  3. STILNOX [Concomitant]
     Dosage: 1 DF/DAY
  4. TANAKAN [Concomitant]
     Dosage: 1 DF, TID
     Route: 048
  5. EXELON [Suspect]
     Indication: DEMENTIA
     Dosage: 9 MG DAILY
     Route: 048
     Dates: start: 20060314, end: 20060318
  6. EXELON [Suspect]
     Dosage: 3 MG, BID
     Route: 048
     Dates: start: 20060319, end: 20060422
  7. EXELON [Suspect]
     Route: 048
     Dates: start: 20060105, end: 20060313

REACTIONS (13)
  - AGGRESSION [None]
  - AGITATION [None]
  - COMA [None]
  - CONFUSIONAL STATE [None]
  - DEHYDRATION [None]
  - DEMENTIA [None]
  - EPILEPSY [None]
  - GASTROINTESTINAL DISORDER [None]
  - GENERAL PHYSICAL HEALTH DETERIORATION [None]
  - HALLUCINATION [None]
  - IMPAIRED SELF-CARE [None]
  - STATUS EPILEPTICUS [None]
  - URINARY INCONTINENCE [None]
